FAERS Safety Report 12193362 (Version 2)
Quarter: 2016Q1

REPORT INFORMATION
  Report Type: Spontaneous
  Country: JP (occurrence: JP)
  Receive Date: 20160320
  Receipt Date: 20160323
  Transmission Date: 20160526
  Serious: Yes (Other)
  Sender: FDA-Public Use
  Company Number: JP-009507513-1603JPN005280

PATIENT

DRUGS (1)
  1. TEMODAL [Suspect]
     Active Substance: TEMOZOLOMIDE
     Dosage: 150 MG/SQM DAILY (ALMOST 300 MG/DAY, DIVIDED DOSE FREQUENCY UNKNOWN)
     Route: 048

REACTIONS (1)
  - Neoplasm progression [Unknown]
